FAERS Safety Report 9753745 (Version 1)
Quarter: 2013Q4

REPORT INFORMATION
  Report Type: Spontaneous
  Country: US (occurrence: US)
  Receive Date: 20131213
  Receipt Date: 20131213
  Transmission Date: 20140711
  Serious: No
  Sender: FDA-Public Use
  Company Number: US-GILEAD-2010-0026706

PATIENT
  Age: 77 Year
  Sex: Female

DRUGS (7)
  1. LETAIRIS [Suspect]
     Indication: PULMONARY ARTERIAL HYPERTENSION
     Route: 048
     Dates: start: 20090911, end: 201001
  2. VIAGRA [Concomitant]
     Indication: PULMONARY ARTERIAL HYPERTENSION
  3. VICODIN [Concomitant]
  4. FUROSEMIDE [Concomitant]
  5. TRAMADOL/APAP [Concomitant]
  6. LIPITOR [Concomitant]
  7. LEVOTHYROXINE [Concomitant]

REACTIONS (1)
  - Liver function test abnormal [Recovering/Resolving]
